FAERS Safety Report 20040701 (Version 1)
Quarter: 2021Q4

REPORT INFORMATION
  Report Type: Spontaneous
  Country: US (occurrence: None)
  Receive Date: 20211105
  Receipt Date: 20211105
  Transmission Date: 20220303
  Serious: Yes (Hospitalization)
  Sender: FDA-Public Use
  Company Number: None

PATIENT
  Age: 3 Year
  Sex: Male

DRUGS (7)
  1. TOBRAMYCIN [Suspect]
     Active Substance: TOBRAMYCIN
     Dosage: OTHER QUANTITY : 300MG/5ML;?
  2. LEVALBUTEROL [Concomitant]
     Active Substance: LEVALBUTEROL
  3. LEVALBUTEROL AER [Concomitant]
  4. LEVOALBUTEROL HCL [Concomitant]
  5. PARI LC PLUS NEBULIZER [Concomitant]
  6. PULMOZYME [Concomitant]
     Active Substance: DORNASE ALFA
  7. ZENPEP [Concomitant]
     Active Substance: PANCRELIPASE AMYLASE\PANCRELIPASE LIPASE\PANCRELIPASE PROTEASE

REACTIONS (1)
  - Infection [None]

NARRATIVE: CASE EVENT DATE: 20211025
